FAERS Safety Report 18178236 (Version 1)
Quarter: 2020Q3

REPORT INFORMATION
  Report Type: Spontaneous
  Country: FR (occurrence: FR)
  Receive Date: 20200821
  Receipt Date: 20200821
  Transmission Date: 20201103
  Serious: Yes (Hospitalization)
  Sender: FDA-Public Use
  Company Number: FR-AUROBINDO-AUR-APL-2020-040193

PATIENT
  Age: 20 Year
  Sex: Female

DRUGS (1)
  1. ELETRIPTAN FILM COATED TABLETS [Suspect]
     Active Substance: ELETRIPTAN
     Indication: MIGRAINE
     Dosage: 40 MILLIGRAM, 1 AS NECESSARY,PRISE DE 5 CORMPIM?S ENTRE 14H ET 18H
     Route: 048
     Dates: start: 20200414, end: 20200414

REACTIONS (4)
  - Tachycardia [Recovered/Resolved]
  - Accidental overdose [Recovered/Resolved]
  - Throat tightness [Recovered/Resolved]
  - Vertigo [Recovered/Resolved]

NARRATIVE: CASE EVENT DATE: 20200414
